FAERS Safety Report 7085148-8 (Version None)
Quarter: 2010Q4

REPORT INFORMATION
  Report Type: 
  Country: None (occurrence: None)
  Receive Date: 20101105
  Receipt Date: 20101101
  Transmission Date: 20110411
  Serious: Yes (Hospitalization)
  Sender: FDA-Public Use
  Company Number: CZ-BRISTOL-MYERS SQUIBB COMPANY-15365935

PATIENT
  Sex: Female

DRUGS (1)
  1. DASATINIB [Suspect]
     Dosage: INITIAL DOSE: 50MG (JAN2010); INCREASED DOSE: 100MG (SEP2010).
     Dates: start: 20100101, end: 20101101

REACTIONS (3)
  - COMA [None]
  - MALIGNANT NEOPLASM PROGRESSION [None]
  - SOMNOLENCE [None]
